FAERS Safety Report 18103624 (Version 1)
Quarter: 2020Q3

REPORT INFORMATION
  Report Type: Spontaneous
  Country: US (occurrence: US)
  Receive Date: 20200731
  Receipt Date: 20200731
  Transmission Date: 20201103
  Serious: Yes (Other)
  Sender: FDA-Public Use
  Company Number: None

PATIENT
  Age: 50 Year
  Sex: Female

DRUGS (1)
  1. DULCOLAX PINK [Suspect]
     Active Substance: BISACODYL

REACTIONS (9)
  - Abdominal pain upper [None]
  - Diarrhoea [None]
  - Nausea [None]
  - Hyperventilation [None]
  - Muscle spasms [None]
  - Abdominal discomfort [None]
  - Hypoaesthesia [None]
  - Loss of consciousness [None]
  - Vomiting [None]

NARRATIVE: CASE EVENT DATE: 20200730
